FAERS Safety Report 23086793 (Version 1)
Quarter: 2023Q4

REPORT INFORMATION
  Report Type: Spontaneous
  Country: US (occurrence: None)
  Receive Date: 20231020
  Receipt Date: 20231020
  Transmission Date: 20240110
  Serious: Yes (Other)
  Sender: FDA-Public Use
  Company Number: US-ENDO-CASE-0032791

PATIENT
  Sex: Male

DRUGS (14)
  1. ACETAMINOPHEN\OXYCODONE HYDROCHLORIDE [Suspect]
     Active Substance: ACETAMINOPHEN\OXYCODONE HYDROCHLORIDE
  2. TRAMADOL HYDROCHLORIDE [Suspect]
     Active Substance: TRAMADOL HYDROCHLORIDE
  3. ENDOCET [Suspect]
     Active Substance: ACETAMINOPHEN\OXYCODONE HYDROCHLORIDE
  4. ACETAMINOPHEN\HYDROCODONE BITARTRATE [Suspect]
     Active Substance: ACETAMINOPHEN\HYDROCODONE BITARTRATE
  5. BUPRENORPHINE HYDROCHLORIDE [Suspect]
     Active Substance: BUPRENORPHINE HYDROCHLORIDE
  6. PERCOCET [Suspect]
     Active Substance: ACETAMINOPHEN\OXYCODONE HYDROCHLORIDE
  7. LIDOCAINE [Suspect]
     Active Substance: LIDOCAINE
  8. TIZANIDINE [Suspect]
     Active Substance: TIZANIDINE
  9. DEXAMETHASONE [Suspect]
     Active Substance: DEXAMETHASONE
  10. GABAPENTIN [Suspect]
     Active Substance: GABAPENTIN
  11. TRAMADOL [Suspect]
     Active Substance: TRAMADOL\TRAMADOL HYDROCHLORIDE
  12. SUBOXONE [Suspect]
     Active Substance: BUPRENORPHINE HYDROCHLORIDE\NALOXONE HYDROCHLORIDE
  13. AMITRIPTYLINE [Suspect]
     Active Substance: AMITRIPTYLINE
  14. MORPHINE SULFATE [Suspect]
     Active Substance: MORPHINE SULFATE

REACTIONS (1)
  - Dependence [Unknown]
